FAERS Safety Report 6558762-3 (Version None)
Quarter: 2010Q1

REPORT INFORMATION
  Report Type: 
  Country: None (occurrence: None)
  Receive Date: 20100129
  Receipt Date: 20100118
  Transmission Date: 20100710
  Serious: No
  Sender: FDA-Public Use
  Company Number: US-B.I. PHARMACEUTICALS,INC./RIDGEFIELD-2010-BP-00670BP

PATIENT
  Sex: Male

DRUGS (3)
  1. SPIRIVA [Suspect]
     Indication: CHRONIC OBSTRUCTIVE PULMONARY DISEASE
     Dosage: 18 MCG
     Route: 055
     Dates: start: 20091001, end: 20091101
  2. LYRICA [Concomitant]
     Indication: HERPES ZOSTER
     Dates: start: 20030101
  3. SYMBALTA [Concomitant]
     Indication: HERPES ZOSTER
     Dates: start: 20030101

REACTIONS (1)
  - DYSPNOEA [None]
